FAERS Safety Report 12431624 (Version 1)
Quarter: 2016Q2

REPORT INFORMATION
  Report Type: Spontaneous
  Country: IT (occurrence: IT)
  Receive Date: 20160603
  Receipt Date: 20160603
  Transmission Date: 20160815
  Serious: Yes (Death)
  Sender: FDA-Public Use
  Company Number: IT-TEVA-664707ACC

PATIENT
  Age: 51 Year
  Sex: Male

DRUGS (2)
  1. ETOPOSIDE. [Suspect]
     Active Substance: ETOPOSIDE
     Indication: EPENDYMOMA
     Route: 065
  2. TEMOZOLOMIDE. [Suspect]
     Active Substance: TEMOZOLOMIDE
     Indication: EPENDYMOMA
     Dosage: DAILY DOSE: 150-200 MG/M2, QD ON DAYS 1-5
     Route: 065

REACTIONS (3)
  - Ependymoma [Fatal]
  - Drug effect incomplete [Fatal]
  - Disease progression [Fatal]
